FAERS Safety Report 4692339-X (Version None)
Quarter: 2005Q2

REPORT INFORMATION
  Report Type: 
  Country: None (occurrence: None)
  Receive Date: 20050614
  Receipt Date: 20050521
  Transmission Date: 20051028
  Serious: Yes (Other)
  Sender: FDA-Public Use
  Company Number: L05-JPN-01804-01

PATIENT
  Age: 33 Month
  Sex: Male
  Weight: 17 kg

DRUGS (2)
  1. CARBAMAZEPINE [Suspect]
     Indication: CONVULSION
  2. VALPROATE SODIUM [Concomitant]

REACTIONS (3)
  - HAIR DISORDER [None]
  - ONYCHOMADESIS [None]
  - SKIN HYPOPIGMENTATION [None]
